FAERS Safety Report 15566105 (Version 2)
Quarter: 2018Q4

REPORT INFORMATION
  Report Type: Spontaneous
  Country: GB (occurrence: GB)
  Receive Date: 20181030
  Receipt Date: 20181106
  Transmission Date: 20190205
  Serious: Yes (Other)
  Sender: FDA-Public Use
  Company Number: GB-MYLANLABS-2018M1080992

PATIENT
  Age: 37 Year
  Sex: Male

DRUGS (3)
  1. CLOZARIL [Suspect]
     Active Substance: CLOZAPINE
     Dosage: 37.5 MG, PM
     Route: 048
     Dates: start: 20180924, end: 20181002
  2. CLOZARIL [Suspect]
     Active Substance: CLOZAPINE
     Dosage: UNK
     Route: 048
     Dates: start: 20181024
  3. CLOZARIL [Suspect]
     Active Substance: CLOZAPINE
     Indication: SCHIZOPHRENIA
     Dosage: 12.5 MG, AM
     Route: 048
     Dates: start: 20180924, end: 20181002

REACTIONS (7)
  - Mean cell volume increased [Recovered/Resolved with Sequelae]
  - Mean cell haemoglobin increased [Recovered/Resolved with Sequelae]
  - Myocarditis [Recovered/Resolved with Sequelae]
  - White blood cell count increased [Recovered/Resolved with Sequelae]
  - Neutrophil count increased [Recovered/Resolved with Sequelae]
  - Ejection fraction decreased [Recovered/Resolved]
  - Mean cell haemoglobin concentration increased [Recovered/Resolved with Sequelae]

NARRATIVE: CASE EVENT DATE: 2018
